FAERS Safety Report 12381180 (Version 1)
Quarter: 2016Q2

REPORT INFORMATION
  Report Type: Spontaneous
  Country: US (occurrence: None)
  Receive Date: 20160517
  Receipt Date: 20160517
  Transmission Date: 20160815
  Serious: No
  Sender: FDA-Public Use
  Company Number: None

PATIENT
  Age: 44 Year
  Sex: Female

DRUGS (1)
  1. HUMIRA [Suspect]
     Active Substance: ADALIMUMAB
     Indication: PSORIASIS
     Dosage: 2 PENS, 1 PEN ONCE ON DAY 1, ONCE ON DAY 8 SUBCUTANEOUS
     Route: 058
     Dates: start: 20160422

REACTIONS (1)
  - Fatigue [None]

NARRATIVE: CASE EVENT DATE: 20160516
